FAERS Safety Report 9653336 (Version 1)
Quarter: 2013Q4

REPORT INFORMATION
  Report Type: Report from Study
  Country: DE (occurrence: DE)
  Receive Date: 20131029
  Receipt Date: 20131029
  Transmission Date: 20140711
  Serious: Yes (Death)
  Sender: FDA-Public Use
  Company Number: DE-SA-2013SA108346

PATIENT
  Age: 73 Year
  Sex: Female
  Weight: 51 kg

DRUGS (1)
  1. MABCAMPATH [Suspect]
     Indication: GRAFT VERSUS HOST DISEASE
     Dosage: 10 MG 1/WEEK 4X
     Route: 065
     Dates: start: 20130726, end: 20130816

REACTIONS (1)
  - Cerebral infarction [Fatal]
